FAERS Safety Report 4729435-4 (Version None)
Quarter: 2005Q3

REPORT INFORMATION
  Report Type: 
  Country: None (occurrence: None)
  Receive Date: 20050721
  Receipt Date: 20050408
  Transmission Date: 20060218
  Serious: No
  Sender: FDA-Public Use
  Company Number: 2005SP000137

PATIENT
  Age: 57 Year
  Sex: Female
  Weight: 71.2147 kg

DRUGS (4)
  1. LUNESTA [Suspect]
     Indication: NARCOLEPSY
     Dosage: 3 MG;HS;ORAL
     Route: 048
     Dates: start: 20050405, end: 20050407
  2. CLONAZEPAM [Concomitant]
  3. UNSPECIFIED BLOOD PRESSURE MEDICATION [Concomitant]
  4. UNSPECIFIED THYROID MEDICATION [Concomitant]

REACTIONS (3)
  - AGITATION [None]
  - DEPRESSION [None]
  - INSOMNIA [None]
